FAERS Safety Report 18829094 (Version 1)
Quarter: 2021Q1

REPORT INFORMATION
  Report Type: Spontaneous
  Country: US (occurrence: US)
  Receive Date: 20210201
  Receipt Date: 20210201
  Transmission Date: 20210419
  Serious: No
  Sender: FDA-Public Use
  Company Number: US-ABBVIE-20K-163-3560622-00

PATIENT
  Age: 33 Year
  Sex: Female
  Weight: 61.29 kg

DRUGS (6)
  1. HUMIRA [Suspect]
     Active Substance: ADALIMUMAB
     Indication: ANKYLOSING SPONDYLITIS
     Route: 058
     Dates: start: 201912
  2. CARVEDILOL. [Concomitant]
     Active Substance: CARVEDILOL
     Indication: HEART DISEASE CONGENITAL
  3. MELOXICAM. [Concomitant]
     Active Substance: MELOXICAM
     Indication: ARTHRALGIA
  4. NORETHINDRON?ETHINYL ESTRADIOL [Concomitant]
     Indication: CONTRACEPTION
  5. ELESTAT [Concomitant]
     Active Substance: EPINASTINE HYDROCHLORIDE
     Indication: HYPERSENSITIVITY
  6. ALBUTEROL. [Concomitant]
     Active Substance: ALBUTEROL
     Indication: ASTHMA

REACTIONS (3)
  - Injection site haemorrhage [Recovered/Resolved]
  - Incorrect dose administered [Recovered/Resolved]
  - Device issue [Recovered/Resolved]

NARRATIVE: CASE EVENT DATE: 20200906
